FAERS Safety Report 9004602 (Version 1)
Quarter: 2013Q1

REPORT INFORMATION
  Report Type: Spontaneous
  Country: US (occurrence: None)
  Receive Date: 20130103
  Receipt Date: 20130103
  Transmission Date: 20140127
  Serious: Yes (Other)
  Sender: FDA-Public Use
  Company Number: None

PATIENT
  Sex: Female
  Weight: 53.07 kg

DRUGS (1)
  1. KALYDECO [Suspect]
     Indication: CYSTIC FIBROSIS
     Dosage: 1 TABLET EVERY 12 HOURS PO
     Route: 048
     Dates: start: 20120301, end: 20120815

REACTIONS (9)
  - Dyspnoea [None]
  - Fatigue [None]
  - Activities of daily living impaired [None]
  - Feeling cold [None]
  - Hot flush [None]
  - Dizziness [None]
  - Balance disorder [None]
  - Feeling abnormal [None]
  - Impaired driving ability [None]
